FAERS Safety Report 16093263 (Version 3)
Quarter: 2019Q4

REPORT INFORMATION
  Report Type: Spontaneous
  Country: JP (occurrence: JP)
  Receive Date: 20190320
  Receipt Date: 20191009
  Transmission Date: 20200122
  Serious: Yes (Hospitalization, Other)
  Sender: FDA-Public Use
  Company Number: JP-DSJP-DSJ-2019-109240

PATIENT

DRUGS (1)
  1. LIXIANA TABLETS [Suspect]
     Active Substance: EDOXABAN TOSYLATE
     Indication: VENOUS THROMBOSIS LIMB
     Dosage: UNK
     Route: 065
     Dates: start: 201709, end: 201712

REACTIONS (3)
  - Genital haemorrhage [Recovered/Resolved]
  - Uterine myoma expulsion [Recovered/Resolved]
  - Femur fracture [Unknown]
